FAERS Safety Report 7303508-4 (Version None)
Quarter: 2011Q1

REPORT INFORMATION
  Report Type: 
  Country: None (occurrence: None)
  Receive Date: 20110221
  Receipt Date: 20110216
  Transmission Date: 20110831
  Serious: Yes (Death, Hospitalization)
  Sender: FDA-Public Use
  Company Number: PHHY2011EC12802

PATIENT
  Sex: Female

DRUGS (2)
  1. ACLASTA [Suspect]
     Indication: OSTEOPENIA
     Dosage: 1 STAT
     Dates: start: 20090201
  2. ACLASTA [Suspect]
     Dosage: UNK
     Dates: start: 20100201

REACTIONS (3)
  - DYSPNOEA [None]
  - CARDIO-RESPIRATORY ARREST [None]
  - PNEUMONIA [None]
